FAERS Safety Report 10981981 (Version 2)
Quarter: 2015Q2

REPORT INFORMATION
  Report Type: Report from Study
  Country: GB (occurrence: GB)
  Receive Date: 20150403
  Receipt Date: 20150413
  Transmission Date: 20150821
  Serious: Yes (Other)
  Sender: FDA-Public Use
  Company Number: GB-AMGEN-GBRCT2015029565

PATIENT
  Age: 2 Year
  Sex: Female

DRUGS (12)
  1. LANSOPRAZOLE. [Concomitant]
     Active Substance: LANSOPRAZOLE
     Dosage: 7.5 MG, QD
     Route: 048
     Dates: start: 20150315
  2. ACICLOVIR [Concomitant]
     Active Substance: ACYCLOVIR
     Dosage: 200 MG, QD
     Route: 048
     Dates: start: 20150315
  3. ALLOPURINOL. [Concomitant]
     Active Substance: ALLOPURINOL
     Dosage: 50 MG, TID
     Route: 048
     Dates: start: 20150316
  4. ORAMORPH SR SUSTAINED RELEASE [Concomitant]
     Active Substance: MORPHINE SULFATE
     Dosage: 1 MG, QD
     Route: 048
     Dates: start: 20150315
  5. BLINATUMOMAB [Suspect]
     Active Substance: BLINATUMOMAB
     Indication: ACUTE LYMPHOCYTIC LEUKAEMIA
     Dosage: 5 MUG/M2, QD
     Route: 042
     Dates: start: 20150316, end: 20150320
  6. METOCLOPRAMIDE. [Concomitant]
     Active Substance: METOCLOPRAMIDE
     Dosage: 1 MG, QD
     Route: 048
     Dates: start: 20150315
  7. CO TRIMOXAZOLE                     /00086101/ [Concomitant]
     Dosage: 180 MG, QD
     Route: 048
     Dates: start: 20150315
  8. VORICONAZOLE. [Concomitant]
     Active Substance: VORICONAZOLE
     Dosage: 60 MG, BID
     Route: 048
     Dates: start: 20150316
  9. POTASSIUM CHLORIDE. [Concomitant]
     Active Substance: POTASSIUM CHLORIDE
     Dosage: 6 MMOL, BID
     Route: 048
     Dates: start: 20150315, end: 20150315
  10. DEXAMETHASONE. [Concomitant]
     Active Substance: DEXAMETHASONE
     Dosage: 2 MG, QD
     Route: 042
     Dates: start: 20150316, end: 20150316
  11. LOPERAMIDE [Concomitant]
     Active Substance: LOPERAMIDE
     Dosage: 1 MG, QD
     Route: 048
     Dates: start: 20150316
  12. CIPROFLOXACIN. [Concomitant]
     Active Substance: CIPROFLOXACIN
     Dosage: 100 MG, BID
     Route: 048
     Dates: start: 20150315, end: 20150316

REACTIONS (2)
  - No therapeutic response [Not Recovered/Not Resolved]
  - Malignant neoplasm progression [Not Recovered/Not Resolved]

NARRATIVE: CASE EVENT DATE: 20150320
